FAERS Safety Report 10143824 (Version 3)
Quarter: 2014Q2

REPORT INFORMATION
  Report Type: Spontaneous
  Country: DE (occurrence: DE)
  Receive Date: 20140430
  Receipt Date: 20140619
  Transmission Date: 20141212
  Serious: Yes (Death, Hospitalization)
  Sender: FDA-Public Use
  Company Number: DE-GLAXOSMITHKLINE-D0083732A

PATIENT
  Age: 76 Year
  Sex: Male
  Weight: 78 kg

DRUGS (10)
  1. RELVAR ELLIPTA [Suspect]
     Indication: RESPIRATORY DISORDER
     Route: 055
     Dates: start: 20140403, end: 20140416
  2. VIANI [Concomitant]
     Route: 055
  3. SEEBRI BREEZHALER [Concomitant]
     Indication: RESPIRATORY DISORDER
     Dosage: 44UG UNKNOWN
     Route: 055
     Dates: start: 201311, end: 201403
  4. GLIMEPIRIDE [Concomitant]
     Indication: TYPE 2 DIABETES MELLITUS
     Dosage: 1MG IN THE MORNING
     Route: 048
  5. SITAGLIPTIN [Concomitant]
     Dosage: 50MG PER DAY
     Route: 048
  6. FOSINORM [Concomitant]
     Dosage: 20MG IN THE MORNING
     Route: 048
  7. BISOPROLOL [Concomitant]
     Dosage: 2.5MG IN THE MORNING
     Route: 048
  8. CALCIUM CARBONATE + COLECALCIFEROL [Concomitant]
     Route: 048
  9. SODIUM HYDROGEN CARBONATE [Concomitant]
     Route: 065
  10. ZOPICLON [Concomitant]
     Indication: SLEEP DISORDER
     Route: 048

REACTIONS (12)
  - Pneumonia [Fatal]
  - Respiratory distress [Unknown]
  - Tachycardia [Unknown]
  - Oxygen saturation decreased [Unknown]
  - Dyspnoea [Not Recovered/Not Resolved]
  - Lung infiltration [Unknown]
  - Lymphadenopathy mediastinal [Unknown]
  - Hypercapnia [Unknown]
  - Atrioventricular block complete [Unknown]
  - Hypotension [Unknown]
  - Septic shock [Fatal]
  - Acute myocardial infarction [Unknown]
